FAERS Safety Report 5484863-7 (Version None)
Quarter: 2007Q4

REPORT INFORMATION
  Report Type: 
  Country: None (occurrence: None)
  Receive Date: 20071010
  Receipt Date: 20070926
  Transmission Date: 20080405
  Serious: Yes (Other)
  Sender: FDA-Public Use
  Company Number: B0489742A

PATIENT
  Age: 32 Year
  Sex: Male

DRUGS (4)
  1. ABACAVIR SULFATE [Suspect]
     Indication: HIV INFECTION
  2. DIDANOSINE                       (FORMULATION UNKNOWN) [Suspect]
     Indication: HIV INFECTION
  3. SAQUINAVIR                      (FORMULATION UNKNOWN) [Suspect]
     Indication: HIV INFECTION
  4. RITONAVIR                               (FORMULATION UNKNOWN) [Suspect]
     Indication: HIV INFECTION

REACTIONS (6)
  - ABSCESS [None]
  - IMMUNE RECONSTITUTION SYNDROME [None]
  - LYMPHADENITIS [None]
  - OEDEMA PERIPHERAL [None]
  - PAIN [None]
  - PURULENCE [None]
